FAERS Safety Report 8974120 (Version 1)
Quarter: 2012Q4

REPORT INFORMATION
  Report Type: Spontaneous
  Country: US (occurrence: None)
  Receive Date: 20121217
  Receipt Date: 20121217
  Transmission Date: 20130627
  Serious: Yes (Hospitalization)
  Sender: FDA-Public Use
  Company Number: None

PATIENT
  Age: 68 Year
  Sex: Male
  Weight: 85.3 kg

DRUGS (1)
  1. GLIPZIDE [Suspect]
     Indication: NIDDM
     Dosage: 20 MG BID PO
     Route: 048
     Dates: start: 20080616, end: 20121211

REACTIONS (1)
  - Hypoglycaemia [None]
